FAERS Safety Report 7367078-7 (Version None)
Quarter: 2011Q1

REPORT INFORMATION
  Report Type: 
  Country: None (occurrence: None)
  Receive Date: 20110322
  Receipt Date: 20100615
  Transmission Date: 20110831
  Serious: No
  Sender: FDA-Public Use
  Company Number: US-TYCO HEALTHCARE/MALLINCKRODT-T201001450

PATIENT
  Sex: Female
  Weight: 97.506 kg

DRUGS (1)
  1. METHADONE [Suspect]
     Indication: BACK PAIN
     Dosage: 10 MG, BID, PRN
     Route: 048
     Dates: start: 20090101

REACTIONS (4)
  - HEADACHE [None]
  - DYSPEPSIA [None]
  - DIZZINESS [None]
  - NAUSEA [None]
